FAERS Safety Report 13263115 (Version 1)
Quarter: 2017Q1

REPORT INFORMATION
  Report Type: Spontaneous
  Country: US (occurrence: US)
  Receive Date: 20170221
  Receipt Date: 20170221
  Transmission Date: 20170428
  Serious: No
  Sender: FDA-Public Use
  Company Number: None

PATIENT
  Age: 48 Year
  Sex: Female

DRUGS (1)
  1. IBRANCE [Suspect]
     Active Substance: PALBOCICLIB
     Indication: BREAST CANCER

REACTIONS (5)
  - Thyroid disorder [None]
  - Fatigue [None]
  - Dry mouth [None]
  - Sluggishness [None]
  - Stomatitis [None]

NARRATIVE: CASE EVENT DATE: 20170221
